FAERS Safety Report 9503707 (Version 4)
Quarter: 2013Q4

REPORT INFORMATION
  Report Type: Spontaneous
  Country: IT (occurrence: IT)
  Receive Date: 20130906
  Receipt Date: 20131120
  Transmission Date: 20140711
  Serious: Yes (Other)
  Sender: FDA-Public Use
  Company Number: IT-MERCK-1306ITA010428

PATIENT
  Age: 40 Year
  Sex: Male
  Weight: 122 kg

DRUGS (6)
  1. SYCREST [Suspect]
     Indication: BIPOLAR DISORDER
     Dosage: 10 MG, QD
     Route: 060
     Dates: start: 20120514, end: 20130808
  2. SYCREST [Suspect]
     Indication: MANIA
  3. CARBOLITHIUM [Concomitant]
     Dosage: UNK
     Route: 048
     Dates: start: 20101111
  4. METFORMIN HYDROCHLORIDE [Concomitant]
     Indication: TYPE 2 DIABETES MELLITUS
     Dosage: UNK
     Route: 048
     Dates: start: 20071005
  5. VICTOZA [Concomitant]
     Indication: TYPE 2 DIABETES MELLITUS
     Dosage: STRENGTH: 6MG/1ML
     Route: 058
     Dates: start: 20110907
  6. FULCRO [Concomitant]
     Indication: HYPERTRIGLYCERIDAEMIA
     Dosage: 200 MG, UNK
     Route: 048
     Dates: start: 20090310

REACTIONS (3)
  - Thrombophlebitis [Recovered/Resolved with Sequelae]
  - Thrombophlebitis [Recovered/Resolved with Sequelae]
  - Thrombophlebitis [Recovered/Resolved with Sequelae]
